FAERS Safety Report 5727350-0 (Version None)
Quarter: 2008Q2

REPORT INFORMATION
  Report Type: 
  Country: None (occurrence: None)
  Receive Date: 20080505
  Receipt Date: 20080424
  Transmission Date: 20081010
  Serious: Yes (Hospitalization)
  Sender: FDA-Public Use
  Company Number: US-ROCHE-560578

PATIENT
  Sex: Male
  Weight: 74.8 kg

DRUGS (3)
  1. PEGASYS [Suspect]
     Dosage: DOSAGE REDUCED.
     Route: 065
     Dates: start: 20080201, end: 20080321
  2. PEGASYS [Suspect]
     Route: 065
     Dates: start: 20080321
  3. COPEGUS [Suspect]
     Dosage: DOSAGE: 2 IN MORNING AND 3 IN EVENING
     Route: 048
     Dates: start: 20080201

REACTIONS (3)
  - LEUKOPENIA [None]
  - MALIGNANT HISTIOCYTOSIS [None]
  - PNEUMONIA [None]
